FAERS Safety Report 7354225-6 (Version None)
Quarter: 2011Q1

REPORT INFORMATION
  Report Type: 
  Country: None (occurrence: None)
  Receive Date: 20110316
  Receipt Date: 20110308
  Transmission Date: 20110831
  Serious: No
  Sender: FDA-Public Use
  Company Number: US-BIOGENIDEC-2011BI008123

PATIENT
  Age: 46 Year
  Sex: Female

DRUGS (1)
  1. TYSABRI [Suspect]
     Indication: MULTIPLE SCLEROSIS
     Route: 042
     Dates: start: 20070207, end: 20110101

REACTIONS (6)
  - MOBILITY DECREASED [None]
  - AMNESIA [None]
  - FALL [None]
  - HAEMATOMA [None]
  - MEMORY IMPAIRMENT [None]
  - CEREBRAL ATROPHY [None]
